FAERS Safety Report 18143686 (Version 3)
Quarter: 2022Q1

REPORT INFORMATION
  Report Type: Other
  Country: CN (occurrence: None)
  Receive Date: 20200812
  Receipt Date: 20220112
  Transmission Date: 20220424
  Serious: Yes (Other)
  Sender: FDA-Public Use
  Company Number: CN-ROCHE-2657155

PATIENT

DRUGS (4)
  1. ALECTINIB [Suspect]
     Active Substance: ALECTINIB
     Indication: Anaplastic large-cell lymphoma
     Route: 048
  2. CERITINIB [Suspect]
     Active Substance: CERITINIB
     Indication: Anaplastic large-cell lymphoma
     Route: 048
  3. CRIZOTINIB [Suspect]
     Active Substance: CRIZOTINIB
     Indication: Anaplastic large-cell lymphoma
     Route: 048
  4. VINBLASTINE [Suspect]
     Active Substance: VINBLASTINE
     Indication: Anaplastic large-cell lymphoma
     Dosage: 4-6 MG/(M2.WEEK) ONCE A WEEK
     Route: 065

REACTIONS (4)
  - Pneumonia [Unknown]
  - Neutropenia [Unknown]
  - Sepsis [Unknown]
  - Intestinal obstruction [Unknown]
